FAERS Safety Report 7996841-4 (Version None)
Quarter: 2011Q4

REPORT INFORMATION
  Report Type: 
  Country: None (occurrence: None)
  Receive Date: 20111221
  Receipt Date: 20111213
  Transmission Date: 20120403
  Serious: Yes (Life-Threatening, Hospitalization)
  Sender: FDA-Public Use
  Company Number: UA-UCBSA-047713

PATIENT
  Age: 28 Month
  Sex: Male
  Weight: 5.5 kg

DRUGS (4)
  1. KEPPRA [Suspect]
     Route: 048
     Dates: start: 20111101, end: 20111101
  2. KEPPRA [Suspect]
     Indication: EPILEPSY
     Dosage: 125 MG IN MORNING AND 250 MG IN EVENING
     Route: 048
     Dates: start: 20111201
  3. NO CONCOMITANT MEDICATION [Concomitant]
  4. KEPPRA [Suspect]
     Route: 048
     Dates: start: 20111101

REACTIONS (1)
  - TOXICITY TO VARIOUS AGENTS [None]
